FAERS Safety Report 9683224 (Version 1)
Quarter: 2013Q4

REPORT INFORMATION
  Report Type: Spontaneous
  Country: US (occurrence: None)
  Receive Date: 20131111
  Receipt Date: 20131111
  Transmission Date: 20140711
  Serious: Yes (Other)
  Sender: FDA-Public Use
  Company Number: None

PATIENT
  Age: 65 Year
  Sex: Female
  Weight: 58.51 kg

DRUGS (7)
  1. PROLIA [Suspect]
     Indication: OSTEOPOROSIS
     Dates: start: 20131105
  2. ESTRACE CREAM, 0.01% [Concomitant]
  3. BORIC ACID VAGINAL SUPPOSITORIES [Concomitant]
  4. MULTIVITAMINS [Concomitant]
  5. VITAMIN D3 [Concomitant]
  6. ACZONE [Concomitant]
  7. CALCIUM [Concomitant]

REACTIONS (1)
  - Rash maculo-papular [None]
